FAERS Safety Report 18118764 (Version 1)
Quarter: 2020Q3

REPORT INFORMATION
  Report Type: Spontaneous
  Country: US (occurrence: US)
  Receive Date: 20200805
  Receipt Date: 20200805
  Transmission Date: 20201103
  Serious: Yes (Hospitalization)
  Sender: FDA-Public Use
  Company Number: None

PATIENT
  Age: 59 Year
  Sex: Male

DRUGS (28)
  1. CINNAMON. [Suspect]
     Active Substance: CINNAMON
  2. D3?1000 [Concomitant]
  3. FEROSUL [Concomitant]
     Active Substance: FERROUS SULFATE
  4. FUROSEMIDE. [Concomitant]
     Active Substance: FUROSEMIDE
  5. MITIGRARE [Concomitant]
  6. PROMETH/COD [Concomitant]
  7. ALLOPURINOL. [Suspect]
     Active Substance: ALLOPURINOL
  8. DOXYCYCL HYC 100 MG GENERIC FOR VIBRA TAB 100 MG [Concomitant]
     Active Substance: DOXYCYCLINE HYCLATE
  9. FLUOXETINE [Concomitant]
     Active Substance: FLUOXETINE HYDROCHLORIDE
  10. PANTOPRAZOLE [Suspect]
     Active Substance: PANTOPRAZOLE
  11. SPIRONOLACT [Suspect]
     Active Substance: SPIRONOLACTONE
  12. BENAZEPRIL [Suspect]
     Active Substance: BENAZEPRIL HYDROCHLORIDE
  13. CITALOPRAM [Suspect]
     Active Substance: CITALOPRAM HYDROBROMIDE
  14. METOPROLOL. [Suspect]
     Active Substance: METOPROLOL
  15. CLOPIDOGREL [Suspect]
     Active Substance: CLOPIDOGREL BISULFATE
  16. LEVOFLOXACIN. [Concomitant]
     Active Substance: LEVOFLOXACIN
  17. ASPIRIN 81 [Suspect]
     Active Substance: ASPIRIN
  18. METHYLPRED [Suspect]
     Active Substance: METHYLPREDNISOLONE
  19. AMLOD/BENAZPRL CAPSULE 5/10 [Concomitant]
     Active Substance: AMLODIPINE BESYLATE\BENAZEPRIL HYDROCHLORIDE
  20. CEFDINIR. [Suspect]
     Active Substance: CEFDINIR
  21. TURMERIC [Suspect]
     Active Substance: HERBALS\TURMERIC
  22. REPATHA [Suspect]
     Active Substance: EVOLOCUMAB
     Indication: HYPERLIPIDAEMIA
     Route: 058
     Dates: start: 20180616
  23. ELIQUIS [Concomitant]
     Active Substance: APIXABAN
  24. FOLIC ACID. [Concomitant]
     Active Substance: FOLIC ACID
  25. PREDNISONE. [Suspect]
     Active Substance: PREDNISONE
  26. METOPROL SUC [Concomitant]
  27. METOPROLOL TAR [Suspect]
     Active Substance: METOPROLOL TARTRATE
  28. RANOLAZINE. [Suspect]
     Active Substance: RANOLAZINE

REACTIONS (1)
  - Cardiac operation [None]

NARRATIVE: CASE EVENT DATE: 20200709
